FAERS Safety Report 5394626-9 (Version None)
Quarter: 2007Q3

REPORT INFORMATION
  Report Type: 
  Country: None (occurrence: None)
  Receive Date: 20070723
  Receipt Date: 20070709
  Transmission Date: 20080115
  Serious: Yes (Other)
  Sender: FDA-Public Use
  Company Number: CA-ELI_LILLY_AND_COMPANY-CA200707002390

PATIENT
  Sex: Female

DRUGS (2)
  1. EVISTA [Suspect]
     Indication: OSTEOPOROSIS
     Dosage: UNK, UNK
     Route: 048
     Dates: start: 20040101
  2. EVISTA [Suspect]
     Dosage: UNK, UNK
     Route: 048

REACTIONS (4)
  - BRAIN NEOPLASM [None]
  - PAIN IN EXTREMITY [None]
  - SURGERY [None]
  - VEIN DISORDER [None]
